FAERS Safety Report 7682287-5 (Version None)
Quarter: 2011Q3

REPORT INFORMATION
  Report Type: 
  Country: None (occurrence: None)
  Receive Date: 20110815
  Receipt Date: 20110803
  Transmission Date: 20111222
  Serious: Yes (Hospitalization)
  Sender: FDA-Public Use
  Company Number: JP-BAYER-201012739BYL

PATIENT
  Age: 33 Year
  Sex: Female

DRUGS (10)
  1. TOLEDOMIN [Concomitant]
     Indication: DEPRESSION
     Dosage: DAILY DOSE 50 MG
     Route: 048
     Dates: start: 20090519
  2. BETAFERON [Suspect]
     Dosage: UNK
     Dates: start: 20091112, end: 20091114
  3. ZOLPIDEM [Concomitant]
     Indication: INSOMNIA
     Dosage: DAILY DOSE 5 MG
     Route: 048
     Dates: start: 20090519
  4. TOLEDOMIN [Concomitant]
     Dosage: DAILY DOSE 30 MG
     Route: 048
     Dates: start: 20090825
  5. METHYCOBAL [Concomitant]
     Indication: MULTIPLE SCLEROSIS
     Dosage: DAILY DOSE 1000 ?G
     Route: 048
     Dates: start: 20020101, end: 20091001
  6. BETAFERON [Suspect]
     Indication: MULTIPLE SCLEROSIS
     Dosage: 8 MIU, QOD
     Route: 058
     Dates: start: 20020801, end: 20091201
  7. LOXONIN [Concomitant]
     Dosage: DAILY DOSE 60 MG
     Route: 048
     Dates: start: 20030901
  8. ALFAROL [Concomitant]
     Indication: OSTEOPOROSIS PROPHYLAXIS
     Dosage: DAILY DOSE 2 ?G
     Route: 048
     Dates: start: 20071016, end: 20091101
  9. ALLEGRA [Concomitant]
     Indication: ASTHMA
     Dosage: DAILY DOSE 60 MG
     Route: 048
     Dates: start: 20090825, end: 20091101
  10. TRAZODONE HYDROCHLORIDE [Concomitant]
     Indication: INSOMNIA
     Dosage: DAILY DOSE 25 MG
     Route: 048
     Dates: start: 20080630, end: 20091230

REACTIONS (1)
  - NEPHROTIC SYNDROME [None]
